FAERS Safety Report 24323011 (Version 2)
Quarter: 2024Q4

REPORT INFORMATION
  Report Type: Report from Study
  Country: JP (occurrence: JP)
  Receive Date: 20240916
  Receipt Date: 20241018
  Transmission Date: 20250115
  Serious: Yes (Other)
  Sender: REGENERON
  Company Number: JP-BAYER-2024A128957

PATIENT
  Age: 55 Year
  Sex: Male

DRUGS (1)
  1. EYLEA [Suspect]
     Active Substance: AFLIBERCEPT
     Indication: Neovascular age-related macular degeneration
     Dosage: 2 MG, SOLUTION FOR INJECTION, 40 MG/ML
     Route: 031
     Dates: start: 20240408

REACTIONS (4)
  - Intra-ocular injection complication [Recovered/Resolved]
  - Visual impairment [Recovered/Resolved]
  - Intraocular pressure fluctuation [Unknown]
  - Vision blurred [Recovered/Resolved]

NARRATIVE: CASE EVENT DATE: 20240902
